FAERS Safety Report 6140340-1 (Version None)
Quarter: 2009Q2

REPORT INFORMATION
  Report Type: 
  Country: None (occurrence: None)
  Receive Date: 20090401
  Receipt Date: 20090324
  Transmission Date: 20091009
  Serious: Yes (Other)
  Sender: FDA-Public Use
  Company Number: US-CELGENEUS-163-20785-07080712

PATIENT
  Sex: Male

DRUGS (4)
  1. THALOMID [Suspect]
     Indication: MULTIPLE MYELOMA
     Route: 048
     Dates: start: 20071201
  2. THALOMID [Suspect]
     Route: 048
     Dates: start: 20070801, end: 20070901
  3. THALOMID [Suspect]
     Dosage: 150MG-200MG
     Route: 048
     Dates: start: 20061201, end: 20070701
  4. DEXAMETHASONE TAB [Concomitant]
     Indication: DRUG USE FOR UNKNOWN INDICATION
     Route: 065

REACTIONS (7)
  - DIZZINESS [None]
  - HYPERLIPIDAEMIA [None]
  - MUSCULAR WEAKNESS [None]
  - OEDEMA [None]
  - PERIPHERAL MOTOR NEUROPATHY [None]
  - RENAL CANCER [None]
  - STASIS SYNDROME [None]
